FAERS Safety Report 26053134 (Version 1)
Quarter: 2025Q4

REPORT INFORMATION
  Report Type: Report from Study
  Country: AR (occurrence: AR)
  Receive Date: 20251117
  Receipt Date: 20251117
  Transmission Date: 20260118
  Serious: Yes (Hospitalization, Other)
  Sender: ROCHE
  Company Number: AR-ROCHE-10000359922

PATIENT
  Age: 13 Year
  Sex: Female

DRUGS (2)
  1. RISDIPLAM [Suspect]
     Active Substance: RISDIPLAM
     Indication: Spinal muscular atrophy
     Dosage: DOSE AND FREQUENCY WERE NOT REPORTED
     Route: 048
     Dates: start: 20250410, end: 20250630
  2. RISDIPLAM [Suspect]
     Active Substance: RISDIPLAM
     Dosage: DOSE AND FREQUENCY WERE NOT REPORTED
     Route: 048
     Dates: start: 20251022

REACTIONS (2)
  - Post procedural infection [Recovered/Resolved]
  - Spinal operation [Recovered/Resolved]

NARRATIVE: CASE EVENT DATE: 20250701
